FAERS Safety Report 15061985 (Version 1)
Quarter: 2018Q2

REPORT INFORMATION
  Report Type: Spontaneous
  Country: SE (occurrence: SE)
  Receive Date: 20180625
  Receipt Date: 20180625
  Transmission Date: 20180711
  Serious: Yes (Other)
  Sender: FDA-Public Use
  Company Number: SE-BRISTOL-MYERS SQUIBB COMPANY-BMS-2018-056777

PATIENT
  Sex: Male

DRUGS (1)
  1. ELIQUIS [Suspect]
     Active Substance: APIXABAN
     Indication: CEREBROVASCULAR ACCIDENT PROPHYLAXIS
     Dosage: UNK
     Route: 048
     Dates: start: 2018

REACTIONS (5)
  - Haemorrhage [Unknown]
  - Thrombophlebitis superficial [Unknown]
  - Pain in extremity [Unknown]
  - Vasculitis [Unknown]
  - Swelling [Unknown]

NARRATIVE: CASE EVENT DATE: 20180617
